FAERS Safety Report 11211613 (Version 3)
Quarter: 2015Q3

REPORT INFORMATION
  Report Type: Spontaneous
  Country: JP (occurrence: JP)
  Receive Date: 20150623
  Receipt Date: 20150929
  Transmission Date: 20151125
  Serious: Yes (Hospitalization, Other)
  Sender: FDA-Public Use
  Company Number: JP-JNJFOC-20150612029

PATIENT
  Age: 45 Year
  Sex: Male
  Weight: 105 kg

DRUGS (7)
  1. CANAGLU [Suspect]
     Active Substance: CANAGLIFLOZIN
     Indication: DIABETES MELLITUS
     Route: 048
     Dates: start: 20141221, end: 20150601
  2. BEZATOL SR [Suspect]
     Active Substance: BEZAFIBRATE
     Indication: DYSLIPIDAEMIA
     Route: 048
     Dates: start: 20111019, end: 20150601
  3. SUINY (ANAGLIPTIN) [Suspect]
     Active Substance: ANAGLIPTIN
     Indication: DIABETES MELLITUS
     Route: 048
     Dates: start: 20140201, end: 20150601
  4. METFORMIN HYDROCHLORIDE. [Suspect]
     Active Substance: METFORMIN HYDROCHLORIDE
     Indication: DIABETES MELLITUS
     Route: 048
     Dates: start: 20121003, end: 20150601
  5. GLIMEPIRIDE. [Suspect]
     Active Substance: GLIMEPIRIDE
     Indication: DIABETES MELLITUS
     Route: 048
     Dates: start: 20120409, end: 20150601
  6. IRBETAN [Suspect]
     Active Substance: IRBESARTAN
     Indication: HYPERTENSION
     Route: 048
     Dates: start: 20120730, end: 20150601
  7. TOPILORIC [Suspect]
     Active Substance: TOPIROXOSTAT
     Indication: HYPERURICAEMIA
     Route: 048
     Dates: start: 20141026, end: 20150601

REACTIONS (2)
  - Cardiac failure [Unknown]
  - Acute myocardial infarction [Unknown]

NARRATIVE: CASE EVENT DATE: 20150531
